FAERS Safety Report 5853418-4 (Version None)
Quarter: 2008Q3

REPORT INFORMATION
  Report Type: 
  Country: None (occurrence: None)
  Receive Date: 20080820
  Receipt Date: 20080805
  Transmission Date: 20090109
  Serious: Yes (Other)
  Sender: FDA-Public Use
  Company Number: B0533048A

PATIENT
  Age: 50 Year
  Sex: Female

DRUGS (1)
  1. VALACYCLOVIR HCL [Suspect]
     Indication: GENITAL HERPES
     Dosage: 500 MG/SINGLE DOSE / ORAL
     Route: 048

REACTIONS (5)
  - ANGIOEDEMA [None]
  - DEPRESSED LEVEL OF CONSCIOUSNESS [None]
  - DIZZINESS [None]
  - DRUG HYPERSENSITIVITY [None]
  - SKIN TEST POSITIVE [None]
